FAERS Safety Report 17272153 (Version 2)
Quarter: 2020Q1

REPORT INFORMATION
  Report Type: Spontaneous
  Country: NL (occurrence: NL)
  Receive Date: 20200115
  Receipt Date: 20200206
  Transmission Date: 20200409
  Serious: Yes (Other)
  Sender: FDA-Public Use
  Company Number: NL-PFIZER INC-2020015482

PATIENT
  Age: 74 Year
  Sex: Female
  Weight: 75 kg

DRUGS (3)
  1. FASLODEX [Concomitant]
     Active Substance: FULVESTRANT
     Dosage: UNK
     Dates: start: 20180719, end: 201904
  2. IBRANCE [Suspect]
     Active Substance: PALBOCICLIB
     Indication: BREAST CANCER METASTATIC
     Dosage: 125 MG, ONCE DAILY, CYCLIC (DAYS 1-21 FOR FOUR WEEKS)
     Dates: start: 20180719, end: 20191114
  3. EXEMESTANE. [Suspect]
     Active Substance: EXEMESTANE
     Indication: BREAST CANCER METASTATIC
     Dosage: 25 MG, 1X/DAY

REACTIONS (6)
  - Leukopenia [Unknown]
  - Neutropenia [Not Recovered/Not Resolved]
  - Neoplasm progression [Unknown]
  - Myelodysplastic syndrome [Not Recovered/Not Resolved]
  - Second primary malignancy [Not Recovered/Not Resolved]
  - Granulocytopenia [Recovering/Resolving]

NARRATIVE: CASE EVENT DATE: 201808
